FAERS Safety Report 9534685 (Version 3)
Quarter: 2013Q4

REPORT INFORMATION
  Report Type: Spontaneous
  Country: US (occurrence: US)
  Receive Date: 20130918
  Receipt Date: 20131203
  Transmission Date: 20140711
  Serious: No
  Sender: FDA-Public Use
  Company Number: US-PFIZER INC-2013264802

PATIENT
  Age: 61 Year
  Sex: Female
  Weight: 70.3 kg

DRUGS (3)
  1. FLECTOR [Suspect]
     Indication: BACK PAIN
     Dosage: UNK
     Dates: start: 201212, end: 20130815
  2. FLECTOR [Suspect]
     Dosage: UNK
     Dates: start: 20130911, end: 20130912
  3. FLECTOR [Suspect]
     Dosage: UNK
     Route: 061
     Dates: start: 201301, end: 201308

REACTIONS (6)
  - Back injury [Unknown]
  - Blood triglycerides increased [Unknown]
  - Skin haemorrhage [Unknown]
  - Skin disorder [Unknown]
  - Dermatitis [Unknown]
  - Blister [Recovering/Resolving]
